FAERS Safety Report 15036643 (Version 1)
Quarter: 2018Q2

REPORT INFORMATION
  Report Type: Spontaneous
  Country: JP (occurrence: JP)
  Receive Date: 20180620
  Receipt Date: 20180620
  Transmission Date: 20180711
  Serious: Yes (Other)
  Sender: FDA-Public Use
  Company Number: JP-PFIZER INC-2018249500

PATIENT
  Age: 7 Decade
  Sex: Male

DRUGS (2)
  1. VFEND [Suspect]
     Active Substance: VORICONAZOLE
     Indication: FEBRILE NEUTROPENIA
     Dosage: UNK
     Route: 042
  2. VFEND [Suspect]
     Active Substance: VORICONAZOLE
     Indication: FUNGAL INFECTION

REACTIONS (2)
  - Hallucination [Recovering/Resolving]
  - Delirium febrile [Recovering/Resolving]
